FAERS Safety Report 5324211-6 (Version None)
Quarter: 2007Q2

REPORT INFORMATION
  Report Type: 
  Country: None (occurrence: None)
  Receive Date: 20070514
  Receipt Date: 20070508
  Transmission Date: 20071010
  Serious: No
  Sender: FDA-Public Use
  Company Number: PHBS2007JP06431

PATIENT
  Age: 28 Year
  Sex: Male

DRUGS (2)
  1. NEORAL [Suspect]
     Indication: NEPHROTIC SYNDROME
     Dosage: 150 MG/D
     Route: 048
     Dates: start: 20060722, end: 20060722
  2. PREDONINE [Suspect]
     Indication: NEPHROTIC SYNDROME
     Dosage: 40 MG/DAY
     Route: 065

REACTIONS (7)
  - BLOOD CREATININE INCREASED [None]
  - FOCAL GLOMERULOSCLEROSIS [None]
  - LOW DENSITY LIPOPROTEIN APHERESIS [None]
  - NAUSEA [None]
  - PALPITATIONS [None]
  - PROTEINURIA [None]
  - RENAL IMPAIRMENT [None]
